FAERS Safety Report 8433656-7 (Version None)
Quarter: 2012Q2

REPORT INFORMATION
  Report Type: 
  Country: None (occurrence: None)
  Receive Date: 20120323
  Receipt Date: 20110825
  Transmission Date: 20120825
  Serious: Yes (Hospitalization, Other)
  Sender: FDA-Public Use
  Company Number: 163-21880-11062877

PATIENT
  Age: 70 Year
  Sex: Female

DRUGS (4)
  1. LEVOTHYROXINE SODIUM [Concomitant]
  2. REVLIMID [Suspect]
     Indication: MULTIPLE MYELOMA
     Dosage: 10 MG, X 21 DAYS, PO
     Route: 048
     Dates: start: 20110501, end: 20110501
  3. CALCIUIM (CALCIUM) [Concomitant]
  4. FUROSEMIDE [Concomitant]

REACTIONS (4)
  - RENAL FAILURE CHRONIC [None]
  - PRURITUS [None]
  - ATRIAL FIBRILLATION [None]
  - SWELLING [None]
